FAERS Safety Report 25106965 (Version 2)
Quarter: 2025Q4

REPORT INFORMATION
  Report Type: Spontaneous
  Country: US (occurrence: US)
  Receive Date: 20250321
  Receipt Date: 20251028
  Transmission Date: 20260118
  Serious: Yes (Other)
  Sender: BRISTOL-MYERS SQUIBB COMPANY
  Company Number: US-BRISTOL-MYERS SQUIBB COMPANY-2025-041497

PATIENT
  Age: 48 Year
  Sex: Male

DRUGS (3)
  1. POMALYST [Suspect]
     Active Substance: POMALIDOMIDE
     Indication: Plasma cell myeloma recurrent
     Route: 048
     Dates: start: 20230519
  2. healex [Concomitant]
     Indication: Product used for unknown indication
  3. Headon [Concomitant]
     Indication: Product used for unknown indication

REACTIONS (1)
  - Neutropenia [Unknown]
